FAERS Safety Report 7866046-6 (Version None)
Quarter: 2011Q4

REPORT INFORMATION
  Report Type: 
  Country: None (occurrence: None)
  Receive Date: 20111028
  Receipt Date: 20110413
  Transmission Date: 20120403
  Serious: No
  Sender: FDA-Public Use
  Company Number: US-GLAXOSMITHKLINE-A0922868A

PATIENT
  Age: 68 Year
  Sex: Male

DRUGS (12)
  1. POLYETHYLENE GLYCOL [Concomitant]
  2. HYDROCHLOROTHIAZIDE [Concomitant]
  3. PREDNISONE [Suspect]
     Indication: BRONCHITIS
     Dosage: 20MG THREE TIMES PER DAY
     Route: 048
     Dates: start: 20110301, end: 20110407
  4. ADVAIR DISKUS 100/50 [Suspect]
     Indication: CHRONIC OBSTRUCTIVE PULMONARY DISEASE
     Dosage: 1PUFF TWICE PER DAY
     Route: 055
     Dates: start: 20110301
  5. HYDROCODONE BITARTRATE [Concomitant]
  6. LYRICA [Concomitant]
  7. NEXIUM [Concomitant]
  8. OXYGEN [Concomitant]
  9. POTASSIUM [Concomitant]
  10. CARISOPRODOL [Concomitant]
  11. DULCOLAX [Concomitant]
  12. FUROSEMIDE [Concomitant]

REACTIONS (1)
  - SWELLING [None]
